FAERS Safety Report 20175312 (Version 4)
Quarter: 2022Q1

REPORT INFORMATION
  Report Type: Spontaneous
  Country: US (occurrence: US)
  Receive Date: 20211213
  Receipt Date: 20220307
  Transmission Date: 20220424
  Serious: No
  Sender: FDA-Public Use
  Company Number: US-KYOWAKIRIN-2021BKK020571

PATIENT

DRUGS (3)
  1. SANCUSO [Suspect]
     Active Substance: GRANISETRON
     Indication: Gastroparesis postoperative
     Dosage: 1 PATCH 1 TIME A WEEK EVERY 7 DAYS
     Route: 065
     Dates: start: 202111
  2. SANCUSO [Suspect]
     Active Substance: GRANISETRON
     Indication: Procedural nausea
     Dosage: APPLY AND WEAR EACH PATCH FOR 7 DAYS
     Route: 065
  3. SANCUSO [Suspect]
     Active Substance: GRANISETRON
     Indication: Procedural vomiting

REACTIONS (3)
  - Product adhesion issue [Not Recovered/Not Resolved]
  - Drug ineffective for unapproved indication [Not Recovered/Not Resolved]
  - Wrong technique in product usage process [Not Recovered/Not Resolved]

NARRATIVE: CASE EVENT DATE: 20211101
